FAERS Safety Report 7984203-5 (Version None)
Quarter: 2011Q4

REPORT INFORMATION
  Report Type: 
  Country: None (occurrence: None)
  Receive Date: 20111216
  Receipt Date: 20111207
  Transmission Date: 20120403
  Serious: Yes (Other)
  Sender: FDA-Public Use
  Company Number: DE-BAYER-2011-095881

PATIENT
  Age: 46 Year
  Sex: Female

DRUGS (1)
  1. MIRENA [Suspect]
     Dosage: 20 MCG/24HR, CONT
     Route: 015
     Dates: start: 20110520

REACTIONS (3)
  - CERVIX CARCINOMA [None]
  - GENITAL HAEMORRHAGE [None]
  - ABDOMINAL PAIN [None]
